FAERS Safety Report 7658942-X (Version None)
Quarter: 2011Q3

REPORT INFORMATION
  Report Type: 
  Country: None (occurrence: None)
  Receive Date: 20110805
  Receipt Date: 20110727
  Transmission Date: 20111222
  Serious: Yes (Other)
  Sender: FDA-Public Use
  Company Number: AR-GENENTECH-322366

PATIENT
  Sex: Male

DRUGS (1)
  1. LUCENTIS [Suspect]
     Indication: HAEMORRHAGE
     Dosage: 1 DF, Q3M
     Route: 031
     Dates: start: 20100701

REACTIONS (3)
  - VISUAL ACUITY REDUCED [None]
  - DRUG INEFFECTIVE [None]
  - RETINAL TEAR [None]
